FAERS Safety Report 7541461 (Version 5)
Quarter: 2012Q4

REPORT INFORMATION
  Report Type: 
  Country: US (occurrence: US)
  Receive Date: 20100815
  Receipt Date: 20121121
  Transmission Date: 20130627
  Serious: Yes (Death, Other)
  Sender: FDA-Public Use
  Company Number: US-BAYER-201030086NA

PATIENT
  Age: 79 Year
  Sex: Male
  Weight: 64 kg

DRUGS (25)
  1. TRASYLOL [Suspect]
     Indication: DOUBLE VESSEL BYPASS GRAFT
     Dosage: 1 ml, UNK
     Route: 058
     Dates: start: 20000526, end: 20000526
  2. TRASYLOL [Suspect]
     Indication: HEART VALVE REPLACEMENT
     Dosage: 200 ml loading dose
     Route: 042
     Dates: start: 20000526, end: 20000526
  3. TRASYLOL [Suspect]
     Indication: DOUBLE VESSEL BYPASS GRAFT
     Dosage: 50 ml/hr infusion
     Dates: start: 20000526, end: 20000526
  4. ATENOLOL [Concomitant]
  5. HYDROCHLOROTHIAZIDE [Concomitant]
  6. ACETYLSALICYLIC ACID (} 100 MG) [Concomitant]
  7. DOPAMINE [Concomitant]
  8. FOSAMAX [Concomitant]
  9. ZOCOR [Concomitant]
  10. TRIAMTERENE [Concomitant]
  11. CALCIUM CHLORIDE [Concomitant]
     Dosage: 1500 mg, UNK
     Dates: start: 20000526
  12. CEFAZOLIN [Concomitant]
     Dosage: 2000 mg, UNK
     Dates: start: 20000526
  13. EPHEDRINE [Concomitant]
     Dosage: 5 mg, UNK
     Dates: start: 20000526, end: 20000526
  14. EPINEPHRINE [Concomitant]
     Dosage: 88 mcg infusion
     Dates: start: 20000526
  15. ETOMIDATE [Concomitant]
     Dosage: 20 mg, UNK
     Dates: start: 20000526, end: 20000526
  16. HEPARIN [Concomitant]
     Dosage: 19-K units
     Dates: start: 20000526, end: 20000526
  17. MIDAZOLAM [Concomitant]
     Dosage: 16 mg, total
     Dates: start: 20000526, end: 20000526
  18. NITROGLYCERIN [Concomitant]
     Dosage: 90 mcg intravenous
     Dates: start: 20000526
  19. PANCURONIUM [Concomitant]
     Dosage: 18 mg, UNK
     Dates: start: 20000526, end: 20000526
  20. PHENYLEPHRINE [Concomitant]
     Dosage: UNK
     Dates: start: 20000526
  21. PROTAMINE [Concomitant]
     Dosage: 300 mg, UNK
     Dates: start: 20000526, end: 20000526
  22. SOLUMEDROL [Concomitant]
     Dosage: 2 g, UNK
  23. SUFENTANIL [Concomitant]
     Dosage: 750 mcg
     Dates: start: 20000526, end: 20000526
  24. VANCOMYCIN [Concomitant]
     Dosage: 1500 mg, UNK
     Dates: start: 20000526
  25. VECURONIUM [Concomitant]
     Dosage: 20 mg, UNK
     Dates: start: 20000526, end: 20000526

REACTIONS (14)
  - Death [Fatal]
  - Multi-organ failure [Unknown]
  - Renal injury [Unknown]
  - Renal failure [Unknown]
  - Anxiety [Unknown]
  - Fear [Unknown]
  - Pain [Unknown]
  - Depression [Unknown]
  - Injury [Unknown]
  - Anxiety [Unknown]
  - Disability [Unknown]
  - Emotional distress [Unknown]
  - Anhedonia [Unknown]
  - Stress [Unknown]
